FAERS Safety Report 9226023 (Version 8)
Quarter: 2016Q2

REPORT INFORMATION
  Report Type: Spontaneous
  Country: US (occurrence: US)
  Receive Date: 20130411
  Receipt Date: 20160407
  Transmission Date: 20160815
  Serious: Yes (Hospitalization, Other)
  Sender: FDA-Public Use
  Company Number: US-009507513-1304USA003836

PATIENT
  Sex: Male
  Weight: 85.85 kg

DRUGS (4)
  1. PROPECIA [Suspect]
     Active Substance: FINASTERIDE
     Dosage: 1 MG, QD
     Route: 048
     Dates: start: 20090823, end: 20110121
  2. PROPECIA [Suspect]
     Active Substance: FINASTERIDE
     Dosage: 1 MG, QD
     Route: 048
     Dates: start: 20080709, end: 20090509
  3. PROPECIA [Suspect]
     Active Substance: FINASTERIDE
     Indication: ALOPECIA
     Dosage: 1 MG, QD
     Route: 048
     Dates: start: 20030602, end: 20051123
  4. PROPECIA [Suspect]
     Active Substance: FINASTERIDE
     Dosage: 1 MG, QD
     Route: 048
     Dates: start: 20060103, end: 20080626

REACTIONS (13)
  - Weight increased [Unknown]
  - Cognitive disorder [Not Recovered/Not Resolved]
  - Retrograde ejaculation [Unknown]
  - Cerebrovascular accident [Unknown]
  - Hair transplant [Unknown]
  - Laparotomy [Unknown]
  - Neurosyphilis [Unknown]
  - Diverticulitis [Unknown]
  - Hypertension [Unknown]
  - Depression [Not Recovered/Not Resolved]
  - Prostatitis [Unknown]
  - Hyperlipidaemia [Unknown]
  - Sexual dysfunction [Not Recovered/Not Resolved]

NARRATIVE: CASE EVENT DATE: 20030602
